FAERS Safety Report 9000976 (Version 1)
Quarter: 2013Q1

REPORT INFORMATION
  Report Type: Spontaneous
  Country: IT (occurrence: IT)
  Receive Date: 20130107
  Receipt Date: 20130107
  Transmission Date: 20140127
  Serious: Yes (Death, Other)
  Sender: FDA-Public Use
  Company Number: PHHY2013IT001266

PATIENT
  Age: 71 Year
  Sex: Male

DRUGS (2)
  1. ZOMETA [Suspect]
     Indication: PROSTATE CANCER STAGE IV
     Dosage: 4 MG, MONTHLY
     Route: 042
     Dates: start: 20030501, end: 20060101
  2. AREDIA [Suspect]
     Indication: PROSTATE CANCER
     Dosage: UNK UKN, UNK
     Dates: start: 20020301, end: 20030401

REACTIONS (4)
  - Prostate cancer metastatic [Fatal]
  - Malignant neoplasm progression [Fatal]
  - Metastases to bone [Fatal]
  - Osteonecrosis of jaw [Unknown]
